FAERS Safety Report 17451466 (Version 1)
Quarter: 2020Q1

REPORT INFORMATION
  Report Type: Spontaneous
  Country: US (occurrence: US)
  Receive Date: 20200224
  Receipt Date: 20200224
  Transmission Date: 20200409
  Serious: No
  Sender: FDA-Public Use
  Company Number: US-BRISTOL-MYERS SQUIBB COMPANY-BMS-2020-015287

PATIENT
  Age: 70 Year
  Sex: Male
  Weight: 64.41 kg

DRUGS (1)
  1. ELIQUIS [Suspect]
     Active Substance: APIXABAN
     Indication: CEREBROVASCULAR ACCIDENT PROPHYLAXIS
     Dosage: 5 MILLIGRAM, BID
     Route: 048
     Dates: start: 20191115

REACTIONS (4)
  - Pruritus [Unknown]
  - Paraesthesia [Unknown]
  - Burning sensation [Unknown]
  - Flatulence [Unknown]

NARRATIVE: CASE EVENT DATE: 20191115
